FAERS Safety Report 7073932-6 (Version None)
Quarter: 2010Q4

REPORT INFORMATION
  Report Type: 
  Country: None (occurrence: None)
  Receive Date: 20101029
  Receipt Date: 20101025
  Transmission Date: 20110411
  Serious: Yes (Death)
  Sender: FDA-Public Use
  Company Number: TR-ASTRAZENECA-2010SE50404

PATIENT
  Age: 35 Year
  Sex: Male
  Weight: 64.9 kg

DRUGS (1)
  1. ATACAND [Suspect]
     Route: 048

REACTIONS (10)
  - BLOOD GLUCOSE [None]
  - BLOOD GLUCOSE INCREASED [None]
  - BLOOD PRESSURE IMMEASURABLE [None]
  - DYSPEPSIA [None]
  - FALL [None]
  - GENERAL PHYSICAL HEALTH DETERIORATION [None]
  - LEFT VENTRICULAR HYPERTROPHY [None]
  - MYOCARDIAL INFARCTION [None]
  - OBESITY [None]
  - PULSE ABSENT [None]
